FAERS Safety Report 14890233 (Version 3)
Quarter: 2018Q2

REPORT INFORMATION
  Report Type: Report from Study
  Country: FR (occurrence: FR)
  Receive Date: 20180514
  Receipt Date: 20180608
  Transmission Date: 20180711
  Serious: Yes (Hospitalization)
  Sender: FDA-Public Use
  Company Number: FR-ROCHE-1991397

PATIENT
  Age: 32 Year
  Sex: Male
  Weight: 83 kg

DRUGS (10)
  1. OBINUTUZUMAB. [Suspect]
     Active Substance: OBINUTUZUMAB
     Dosage: TEMPORARILY DISCONTINUED
     Route: 042
     Dates: start: 20170906, end: 20170907
  2. DEXAMETHASONE. [Suspect]
     Active Substance: DEXAMETHASONE
     Indication: MANTLE CELL LYMPHOMA
     Route: 065
     Dates: start: 20170823, end: 20171026
  3. CYTARABINE. [Suspect]
     Active Substance: CYTARABINE
     Indication: MANTLE CELL LYMPHOMA
     Route: 065
     Dates: start: 20170823, end: 20171026
  4. MELPHALAN. [Concomitant]
     Active Substance: MELPHALAN
     Route: 065
     Dates: start: 20171220, end: 20171225
  5. CARMUSTINE [Concomitant]
     Active Substance: CARMUSTINE
     Route: 065
     Dates: start: 20171220, end: 20171225
  6. CYTARABINE. [Suspect]
     Active Substance: CYTARABINE
     Route: 065
     Dates: start: 20171220, end: 20171225
  7. OBINUTUZUMAB. [Suspect]
     Active Substance: OBINUTUZUMAB
     Dosage: MOST RECENT DOSE PRIOR TO SAE: 15/OCT/2017
     Route: 042
     Dates: end: 20180314
  8. OXALIPLATIN. [Suspect]
     Active Substance: OXALIPLATIN
     Indication: MANTLE CELL LYMPHOMA
     Route: 065
     Dates: start: 20170823, end: 20171026
  9. OBINUTUZUMAB. [Suspect]
     Active Substance: OBINUTUZUMAB
     Indication: MANTLE CELL LYMPHOMA
     Dosage: LAST DOSE: 30/AUG/2017
     Route: 042
     Dates: start: 20170823, end: 20170830
  10. ETOPOSIDE. [Concomitant]
     Active Substance: ETOPOSIDE
     Route: 065
     Dates: start: 20171220, end: 20171225

REACTIONS (4)
  - Sinusitis aspergillus [Recovered/Resolved]
  - Device related infection [Recovered/Resolved]
  - Lung infection [Recovered/Resolved]
  - Febrile neutropenia [Recovered/Resolved]

NARRATIVE: CASE EVENT DATE: 20170901
